FAERS Safety Report 21739201 (Version 1)
Quarter: 2022Q4

REPORT INFORMATION
  Report Type: Spontaneous
  Country: US (occurrence: US)
  Receive Date: 20221216
  Receipt Date: 20221216
  Transmission Date: 20230112
  Serious: No
  Sender: FDA-Public Use
  Company Number: US-GSKCCFUS-Case-01577058_AE-89142

PATIENT
  Sex: Male

DRUGS (1)
  1. FLOVENT HFA [Suspect]
     Active Substance: FLUTICASONE PROPIONATE
     Indication: Product used for unknown indication
     Dosage: 110 UG, BID, 2 PUFFS PO IN THE MORNING AM AND 2 PUFFS PO IN THE EVENING
     Route: 055

REACTIONS (2)
  - Product prescribing error [Unknown]
  - Overdose [Unknown]
